FAERS Safety Report 25902382 (Version 1)
Quarter: 2025Q4

REPORT INFORMATION
  Report Type: Spontaneous
  Country: CN (occurrence: CN)
  Receive Date: 20251009
  Receipt Date: 20251009
  Transmission Date: 20260118
  Serious: Yes (Hospitalization)
  Sender: MERCK SHARP & DOHME LLC
  Company Number: CN-009507513-2336085

PATIENT
  Age: 70 Year
  Sex: Female

DRUGS (1)
  1. ERTUGLIFLOZIN [Suspect]
     Active Substance: ERTUGLIFLOZIN
     Indication: Type 2 diabetes mellitus
     Route: 048
     Dates: start: 20241101, end: 20250927

REACTIONS (2)
  - Urinary tract infection [Recovering/Resolving]
  - Body temperature abnormal [Unknown]

NARRATIVE: CASE EVENT DATE: 20250927
